FAERS Safety Report 20688568 (Version 1)
Quarter: 2022Q2

REPORT INFORMATION
  Report Type: Spontaneous
  Country: US (occurrence: US)
  Receive Date: 20220408
  Receipt Date: 20220408
  Transmission Date: 20220720
  Serious: No
  Sender: FDA-Public Use
  Company Number: US-SA-SAC20220406000360

PATIENT
  Sex: Female

DRUGS (40)
  1. FABRAZYME [Suspect]
     Active Substance: AGALSIDASE BETA
     Indication: Fabry^s disease
     Dosage: 65 MG, QOW
     Route: 042
     Dates: start: 20070323
  2. BOTOX [Suspect]
     Active Substance: ONABOTULINUMTOXINA
  3. PANTOPRAZOLE SODIUM [Concomitant]
     Active Substance: PANTOPRAZOLE SODIUM
  4. LOSARTAN POTASSIUM [Concomitant]
     Active Substance: LOSARTAN POTASSIUM
  5. WARFARIN SODIUM [Concomitant]
     Active Substance: WARFARIN SODIUM
  6. ACETAMINOPHEN [Concomitant]
     Active Substance: ACETAMINOPHEN
  7. CODEINE [Concomitant]
     Active Substance: CODEINE
  8. HEPARIN [Concomitant]
     Active Substance: HEPARIN SODIUM
  9. METOPROLOL SUCCINATE [Concomitant]
     Active Substance: METOPROLOL SUCCINATE
  10. LIDOCAINE [Concomitant]
     Active Substance: LIDOCAINE
  11. PRILOCAINE [Concomitant]
     Active Substance: PRILOCAINE
  12. SODIUM CHLORIDE [Concomitant]
     Active Substance: SODIUM CHLORIDE
  13. STERILE WATER [Concomitant]
     Active Substance: WATER
  14. EPINEPHRINE [Concomitant]
     Active Substance: EPINEPHRINE
  15. ZOFRAN [Concomitant]
     Active Substance: ONDANSETRON HYDROCHLORIDE
  16. SHINGRIX [Concomitant]
     Active Substance: RECOMBINANT VARICELLA ZOSTER VIRUS (VZV) GLYCOPROTEIN E
  17. ISOSORBIDE MONONITRATE [Concomitant]
     Active Substance: ISOSORBIDE MONONITRATE
  18. HYDRALAZINE [Concomitant]
     Active Substance: HYDRALAZINE HYDROCHLORIDE
  19. CAPSAICIN [Concomitant]
     Active Substance: CAPSAICIN
  20. DOCUSATE SODIUM [Concomitant]
     Active Substance: DOCUSATE SODIUM
  21. GABAPENTIN [Concomitant]
     Active Substance: GABAPENTIN
  22. NIFEDIPINE [Concomitant]
     Active Substance: NIFEDIPINE
  23. BISACODYL [Concomitant]
     Active Substance: BISACODYL
  24. ACETAMINOPHEN\ASCORBIC ACID [Concomitant]
     Active Substance: ACETAMINOPHEN\ASCORBIC ACID
  25. VITAMIN D3 [Concomitant]
     Active Substance: CHOLECALCIFEROL
  26. MIRALAX [Concomitant]
     Active Substance: POLYETHYLENE GLYCOL 3350
  27. NITROFURANTOIN [Concomitant]
     Active Substance: NITROFURANTOIN
  28. SEVELAMER CARBONATE [Concomitant]
     Active Substance: SEVELAMER CARBONATE
  29. HYDROXYZINE [Concomitant]
     Active Substance: HYDROXYZINE HYDROCHLORIDE
  30. TRIAMCINOLONE [Concomitant]
     Active Substance: TRIAMCINOLONE
  31. MECLIZINE [Concomitant]
     Active Substance: MECLIZINE HYDROCHLORIDE
  32. PROCHLORPERAZINE [Concomitant]
     Active Substance: PROCHLORPERAZINE
  33. PROGESTERONE [Concomitant]
     Active Substance: PROGESTERONE
  34. CLARITHROMYCIN [Concomitant]
     Active Substance: CLARITHROMYCIN
  35. TYLENOL COLD + SINUS [Concomitant]
  36. DULCOLAX (BISACODYL) [Concomitant]
     Active Substance: BISACODYL
  37. FLUCELVAX QUADRIVALENT [Concomitant]
  38. PNEUMOVAX 23 [Concomitant]
     Active Substance: PNEUMOCOCCAL VACCINE, POLYVALENT 23
  39. PFIZER-BIONTECH COVID-19 VACCINE [Concomitant]
     Active Substance: TOZINAMERAN
  40. AUGMENTIN [Concomitant]
     Active Substance: AMOXICILLIN\CLAVULANATE POTASSIUM

REACTIONS (1)
  - Nausea [Unknown]
